FAERS Safety Report 13547210 (Version 1)
Quarter: 2017Q2

REPORT INFORMATION
  Report Type: Spontaneous
  Country: FR (occurrence: FR)
  Receive Date: 20170515
  Receipt Date: 20170515
  Transmission Date: 20170830
  Serious: Yes (Hospitalization, Other)
  Sender: FDA-Public Use
  Company Number: FR-PFIZER INC-2017204698

PATIENT
  Age: 60 Year
  Sex: Male

DRUGS (4)
  1. STRIBILD [Interacting]
     Active Substance: COBICISTAT\ELVITEGRAVIR\EMTRICITABINE\TENOFOVIR DISOPROXIL FUMARATE
     Indication: HIV INFECTION
     Dosage: 1 DF, 1X/DAY
     Route: 048
     Dates: start: 201605, end: 20161028
  2. TRIFLUCAN [Interacting]
     Active Substance: FLUCONAZOLE
     Dosage: UNK
     Route: 048
     Dates: start: 201608
  3. SERETIDE [Interacting]
     Active Substance: FLUTICASONE PROPIONATE\SALMETEROL XINAFOATE
     Indication: ASTHMA
     Dosage: 500 UG, 2X/DAY (MORNING AND EVENING)
     Route: 055
     Dates: end: 20161028
  4. TRIFLUCAN [Suspect]
     Active Substance: FLUCONAZOLE
     Indication: OROPHARYNGEAL CANDIDIASIS
     Dosage: UNK
     Route: 048
     Dates: start: 201607, end: 201607

REACTIONS (6)
  - Condition aggravated [Unknown]
  - Asthma [Unknown]
  - Drug interaction [Recovering/Resolving]
  - Cushing^s syndrome [Recovering/Resolving]
  - Gynaecomastia [Unknown]
  - Waist circumference increased [Unknown]

NARRATIVE: CASE EVENT DATE: 201606
